FAERS Safety Report 7893988-8 (Version None)
Quarter: 2011Q4

REPORT INFORMATION
  Report Type: 
  Country: None (occurrence: None)
  Receive Date: 20111104
  Receipt Date: 20111102
  Transmission Date: 20120403
  Serious: No
  Sender: FDA-Public Use
  Company Number: US-PFIZER INC-2011269331

PATIENT
  Age: 20 Year
  Sex: Male
  Weight: 72.562 kg

DRUGS (2)
  1. CHANTIX [Suspect]
     Dosage: UNK
     Route: 048
     Dates: start: 20080601, end: 20080601
  2. CHANTIX [Suspect]
     Indication: SMOKING CESSATION THERAPY
     Dosage: 0.5 MG, DAILY
     Route: 048
     Dates: start: 20080613, end: 20080601

REACTIONS (2)
  - THINKING ABNORMAL [None]
  - ABNORMAL DREAMS [None]
